FAERS Safety Report 17470968 (Version 1)
Quarter: 2020Q1

REPORT INFORMATION
  Report Type: Spontaneous
  Country: US (occurrence: US)
  Receive Date: 20200227
  Receipt Date: 20200227
  Transmission Date: 20200409
  Serious: No
  Sender: FDA-Public Use
  Company Number: US-BRISTOL-MYERS SQUIBB COMPANY-BMS-2020-013364

PATIENT
  Age: 64 Year
  Sex: Male
  Weight: 122 kg

DRUGS (1)
  1. ELIQUIS [Suspect]
     Active Substance: APIXABAN
     Indication: CEREBROVASCULAR ACCIDENT PROPHYLAXIS
     Dosage: 5 MILLIGRAM, BID
     Route: 048
     Dates: start: 20190601

REACTIONS (4)
  - Skin sensitisation [Unknown]
  - Skin laceration [Unknown]
  - Increased tendency to bruise [Unknown]
  - Skin disorder [Unknown]

NARRATIVE: CASE EVENT DATE: 20190901
